FAERS Safety Report 16953464 (Version 2)
Quarter: 2019Q4

REPORT INFORMATION
  Report Type: Spontaneous
  Country: US (occurrence: US)
  Receive Date: 20191023
  Receipt Date: 20191101
  Transmission Date: 20200122
  Serious: No
  Sender: FDA-Public Use
  Company Number: US-SA-2019SA292303

PATIENT
  Age: 62 Year
  Sex: Female

DRUGS (8)
  1. ETODOLAC. [Concomitant]
     Active Substance: ETODOLAC
  2. DUPIXENT [Suspect]
     Active Substance: DUPILUMAB
     Indication: DERMATITIS ATOPIC
     Dosage: 300 MG, QOW
     Route: 058
     Dates: start: 20190910
  3. FLUTICASONE. [Concomitant]
     Active Substance: FLUTICASONE
  4. CARBAMAZEPIN [Concomitant]
     Active Substance: CARBAMAZEPINE
  5. FEMRING [Concomitant]
     Active Substance: ESTRADIOL ACETATE
  6. EUCRISA [Concomitant]
     Active Substance: CRISABOROLE
  7. LOSARTAN. [Concomitant]
     Active Substance: LOSARTAN
  8. SERTRALINE [Concomitant]
     Active Substance: SERTRALINE HYDROCHLORIDE

REACTIONS (4)
  - Dermatitis atopic [Not Recovered/Not Resolved]
  - Eye pain [Not Recovered/Not Resolved]
  - Condition aggravated [Not Recovered/Not Resolved]
  - Therapeutic response decreased [Not Recovered/Not Resolved]

NARRATIVE: CASE EVENT DATE: 2019
